FAERS Safety Report 6996409-2 (Version None)
Quarter: 2010Q3

REPORT INFORMATION
  Report Type: 
  Country: None (occurrence: None)
  Receive Date: 20100918
  Receipt Date: 20090220
  Transmission Date: 20110219
  Serious: No
  Sender: FDA-Public Use
  Company Number: US-WYE-H08302009

PATIENT
  Sex: Male

DRUGS (4)
  1. EFFEXOR XR [Suspect]
     Indication: ANXIETY
     Route: 048
     Dates: start: 20070101
  2. EFFEXOR XR [Suspect]
     Route: 048
     Dates: start: 20090130, end: 20090208
  3. EFFEXOR XR [Suspect]
     Route: 048
     Dates: start: 20090209, end: 20090218
  4. RAMIPRIL [Concomitant]

REACTIONS (4)
  - DRUG WITHDRAWAL SYNDROME [None]
  - PARAESTHESIA [None]
  - PRESYNCOPE [None]
  - UNEVALUABLE EVENT [None]
